FAERS Safety Report 7867928-1 (Version None)
Quarter: 2011Q4

REPORT INFORMATION
  Report Type: 
  Country: None (occurrence: None)
  Receive Date: 20111028
  Receipt Date: 20111026
  Transmission Date: 20120403
  Serious: Yes (Death)
  Sender: FDA-Public Use
  Company Number: PHHY2011MX94778

PATIENT
  Age: 69 Year
  Sex: Female

DRUGS (3)
  1. ONBREZ [Suspect]
     Indication: CHRONIC OBSTRUCTIVE PULMONARY DISEASE
     Dosage: 300 UG, PER DAY
     Dates: start: 20110701
  2. LOSARTAN POTASSIUM [Concomitant]
  3. CAPTOPRIL [Concomitant]

REACTIONS (1)
  - DEATH [None]
